FAERS Safety Report 10153334 (Version 2)
Quarter: 2014Q2

REPORT INFORMATION
  Report Type: Spontaneous
  Country: US (occurrence: US)
  Receive Date: 20140505
  Receipt Date: 20140604
  Transmission Date: 20141212
  Serious: Yes (Other)
  Sender: FDA-Public Use
  Company Number: US-CELGENEUS-163-20785-14045049

PATIENT
  Sex: Female

DRUGS (4)
  1. THALOMID [Suspect]
     Indication: HEREDITARY HAEMORRHAGIC TELANGIECTASIA
     Dosage: 150 MILLIGRAM
     Route: 048
     Dates: start: 200811
  2. THALOMID [Suspect]
     Dosage: 200 MILLIGRAM
     Route: 048
     Dates: start: 201002
  3. THALOMID [Suspect]
     Dosage: 300 MILLIGRAM
     Route: 048
     Dates: start: 201204
  4. THALOMID [Suspect]
     Dosage: 400 MILLIGRAM
     Route: 048
     Dates: start: 201404

REACTIONS (1)
  - Epistaxis [Unknown]
